FAERS Safety Report 9095515 (Version 1)
Quarter: 2013Q1

REPORT INFORMATION
  Report Type: Spontaneous
  Country: US (occurrence: US)
  Receive Date: 20130131
  Receipt Date: 20130131
  Transmission Date: 20140127
  Serious: No
  Sender: FDA-Public Use
  Company Number: US-ABBOTT-12P-163-1006962-00

PATIENT
  Sex: Female
  Weight: 77.63 kg

DRUGS (5)
  1. HUMIRA [Suspect]
     Indication: RHEUMATOID ARTHRITIS
     Dates: start: 2009
  2. ALLOPURINOL [Concomitant]
     Indication: GOUT
  3. QUINAPRIL [Concomitant]
     Indication: HYPERTENSION
  4. HYDROCODONE [Concomitant]
     Indication: PAIN
  5. BENADRYL [Concomitant]
     Indication: HYPERSENSITIVITY

REACTIONS (7)
  - Device malfunction [Recovered/Resolved]
  - Incorrect dose administered [Recovered/Resolved]
  - Injection site pain [Recovered/Resolved]
  - Injection site haemorrhage [Recovered/Resolved]
  - Injection site urticaria [Recovered/Resolved]
  - Device malfunction [Recovered/Resolved]
  - Drug dose omission [Recovered/Resolved]
